FAERS Safety Report 9171188 (Version 1)
Quarter: 2013Q1

REPORT INFORMATION
  Report Type: Spontaneous
  Country: US (occurrence: US)
  Receive Date: 20130319
  Receipt Date: 20130319
  Transmission Date: 20140127
  Serious: Yes (Other)
  Sender: FDA-Public Use
  Company Number: PHEH2013US005970

PATIENT
  Sex: 0

DRUGS (1)
  1. SANDOSTATIN LAR DEPOT [Suspect]
     Dosage: EVERY 3 WEEKS

REACTIONS (1)
  - Intraocular pressure increased [Unknown]
